FAERS Safety Report 14340934 (Version 1)
Quarter: 2018Q1

REPORT INFORMATION
  Report Type: Spontaneous
  Country: GB (occurrence: GB)
  Receive Date: 20180102
  Receipt Date: 20180102
  Transmission Date: 20180509
  Serious: Yes (Death)
  Sender: FDA-Public Use
  Company Number: GB-INSYS THERAPEUTICS, INC-INS201712-000779

PATIENT
  Age: 47 Year
  Sex: Male

DRUGS (15)
  1. 2-ETHYLIDENE-1, 5-DIMETHYL-3, 3-DIPHENYLPYRROLIDINE (EDDP) [Suspect]
     Active Substance: METHADONE HYDROCHLORIDE
  2. NORFENTANYL [Suspect]
     Active Substance: NORFENTANYL
  3. TEMAZEPAM. [Suspect]
     Active Substance: TEMAZEPAM
  4. METHADONE [Suspect]
     Active Substance: METHADONE HYDROCHLORIDE
  5. BUTYRYLFENTANYL [Suspect]
     Active Substance: BUTYRFENTANYL
  6. COCAINE [Suspect]
     Active Substance: COCAINE
  7. NORDIAZEPAM [Suspect]
     Active Substance: NORDAZEPAM
  8. BENZOYLECGONINE [Suspect]
     Active Substance: BENZOYLECGONINE
  9. FENTANYL. [Suspect]
     Active Substance: FENTANYL
     Indication: PRODUCT USED FOR UNKNOWN INDICATION
  10. CARFENTANIL [Suspect]
     Active Substance: CARFENTANIL
  11. DIAZEPAM. [Suspect]
     Active Substance: DIAZEPAM
  12. OXAZEPAM. [Suspect]
     Active Substance: OXAZEPAM
  13. CODEINE [Suspect]
     Active Substance: CODEINE
  14. PREGABALIN. [Suspect]
     Active Substance: PREGABALIN
  15. QUETIAPINE. [Suspect]
     Active Substance: QUETIAPINE

REACTIONS (2)
  - Depressed level of consciousness [Fatal]
  - Toxicity to various agents [Fatal]

NARRATIVE: CASE EVENT DATE: 2017
